FAERS Safety Report 12018141 (Version 5)
Quarter: 2016Q2

REPORT INFORMATION
  Report Type: Spontaneous
  Country: US (occurrence: US)
  Receive Date: 20160205
  Receipt Date: 20160622
  Transmission Date: 20160815
  Serious: Yes (Other)
  Sender: FDA-Public Use
  Company Number: US-CELGENEUS-USA-2016010545

PATIENT
  Sex: Male
  Weight: 117.59 kg

DRUGS (3)
  1. REVLIMID [Suspect]
     Active Substance: LENALIDOMIDE
     Indication: PLASMA CELL MYELOMA
     Dosage: 15 MILLIGRAM
     Route: 048
     Dates: start: 20151209
  2. NINLARO [Concomitant]
     Active Substance: IXAZOMIB
     Indication: PRODUCT USED FOR UNKNOWN INDICATION
     Route: 065
  3. DEXAMETHASONE. [Concomitant]
     Active Substance: DEXAMETHASONE
     Indication: PRODUCT USED FOR UNKNOWN INDICATION
     Route: 065

REACTIONS (11)
  - Fatigue [Recovered/Resolved]
  - Erythema [Unknown]
  - Feeling hot [Unknown]
  - Insomnia [Unknown]
  - Urticaria [Recovered/Resolved]
  - Constipation [Unknown]
  - Cognitive disorder [Unknown]
  - Irritability [Recovered/Resolved]
  - Increased appetite [Unknown]
  - Depression [Recovered/Resolved]
  - Loss of libido [Unknown]
